FAERS Safety Report 13737007 (Version 3)
Quarter: 2017Q3

REPORT INFORMATION
  Report Type: Report from Study
  Country: US (occurrence: US)
  Receive Date: 20170710
  Receipt Date: 20170912
  Transmission Date: 20171127
  Serious: Yes (Death, Hospitalization)
  Sender: FDA-Public Use
  Company Number: US-VIFOR (INTERNATIONAL) INC.-VIT-2017-07262

PATIENT
  Age: 82 Year
  Sex: Female
  Weight: 75.82 kg

DRUGS (39)
  1. LASIX [Concomitant]
     Dates: start: 20170802
  2. ROPINIROLE. [Concomitant]
     Active Substance: ROPINIROLE
     Dates: start: 20161018
  3. LEVEMIR [Concomitant]
     Dates: start: 20170802
  4. HYDRALAZINE [Concomitant]
     Active Substance: HYDRALAZINE HYDROCHLORIDE
     Dates: start: 20170802
  5. MELATONIN [Concomitant]
     Active Substance: MELATONIN
     Dates: start: 20161018
  6. OMEPRAZOLE. [Concomitant]
     Active Substance: OMEPRAZOLE
  7. CALCITRIOL. [Concomitant]
     Active Substance: CALCITRIOL
     Dates: start: 20161018
  8. PRAVASTATIN. [Concomitant]
     Active Substance: PRAVASTATIN
     Dates: start: 20161018
  9. CLONIDINE. [Concomitant]
     Active Substance: CLONIDINE
     Dates: start: 20161018
  10. HYDROCO/APAP [Concomitant]
     Active Substance: ACETAMINOPHEN\HYDROCODONE
  11. TERAZOSIN [Concomitant]
     Active Substance: TERAZOSIN\TERAZOSIN HYDROCHLORIDE
     Dates: start: 20170708
  12. TERAZOSIN [Concomitant]
     Active Substance: TERAZOSIN\TERAZOSIN HYDROCHLORIDE
     Dates: start: 20170802
  13. NOVOLOG [Concomitant]
     Dates: start: 20170802
  14. FERROUS SULFATE. [Concomitant]
     Active Substance: FERROUS SULFATE
     Dates: start: 20161018
  15. CALCIUM [Concomitant]
     Active Substance: CALCIUM
     Dates: start: 20161018
  16. ZANTAC [Concomitant]
     Dates: start: 20161018
  17. ALBUTEROL [Concomitant]
     Dates: start: 20161018
  18. ALLOPURINOL. [Concomitant]
     Active Substance: ALLOPURINOL
     Dates: start: 20161018
  19. LEVOTHYROXINE SODIUM. [Concomitant]
     Active Substance: LEVOTHYROXINE SODIUM
     Dates: start: 20161018
  20. LEVEMIR [Concomitant]
     Dates: start: 20170708
  21. VELTASSA [Suspect]
     Active Substance: PATIROMER
     Indication: HYPERKALAEMIA
     Route: 048
     Dates: start: 20160331
  22. GABAPENTIN. [Concomitant]
     Active Substance: GABAPENTIN
     Dates: start: 20161018
  23. ALCOHOL. [Concomitant]
     Active Substance: ALCOHOL
  24. SPIRONOLACTONE. [Concomitant]
     Active Substance: SPIRONOLACTONE
     Dates: start: 20170802
  25. LASIX [Concomitant]
     Dates: start: 20161018
  26. ACETYLSALICYLIC ACID [Concomitant]
     Active Substance: ASPIRIN
  27. NIFEDICAL XL [Concomitant]
     Active Substance: NIFEDIPINE
     Dates: start: 20161018
  28. PLAVIX [Concomitant]
     Dates: start: 20161018
  29. SPIRONOLACTONE. [Concomitant]
     Active Substance: SPIRONOLACTONE
     Dates: start: 20170708
  30. HYDRALAZINE [Concomitant]
     Active Substance: HYDRALAZINE HYDROCHLORIDE
     Dates: start: 20170708
  31. NIFEDICAL XL [Concomitant]
     Active Substance: NIFEDIPINE
     Dates: start: 20170708
  32. CLONIDINE. [Concomitant]
     Active Substance: CLONIDINE
     Dates: start: 20170730
  33. GLIMEPIRIDE. [Concomitant]
     Active Substance: GLIMEPIRIDE
     Dates: start: 20161018
  34. NOVOLOG [Concomitant]
     Dates: start: 20170708
  35. LASIX [Concomitant]
     Dates: start: 20170708
  36. HYDRALAZINE [Concomitant]
     Active Substance: HYDRALAZINE HYDROCHLORIDE
     Dates: start: 20161018
  37. NIFEDICAL XL [Concomitant]
     Active Substance: NIFEDIPINE
     Dates: start: 20170802
  38. CLONIDINE. [Concomitant]
     Active Substance: CLONIDINE
     Dates: start: 20170708
  39. CYMBALTA [Concomitant]
     Dates: start: 20161018

REACTIONS (3)
  - Death [Fatal]
  - Pneumonia [Recovering/Resolving]
  - Fall [Recovering/Resolving]

NARRATIVE: CASE EVENT DATE: 20170615
